FAERS Safety Report 4693457-2 (Version None)
Quarter: 2005Q2

REPORT INFORMATION
  Report Type: 
  Country: None (occurrence: None)
  Receive Date: 20050617
  Receipt Date: 20050609
  Transmission Date: 20051028
  Serious: Yes (Other)
  Sender: FDA-Public Use
  Company Number: PHNU2005DE02226

PATIENT
  Sex: Female

DRUGS (1)
  1. SANDIMMUNE [Suspect]
     Indication: DERMATITIS ATOPIC
     Dates: start: 20030201

REACTIONS (7)
  - ALANINE AMINOTRANSFERASE INCREASED [None]
  - BLOOD TRIGLYCERIDES INCREASED [None]
  - BLOOD URIC ACID INCREASED [None]
  - GAMMA-GLUTAMYLTRANSFERASE INCREASED [None]
  - GLUTAMATE DEHYDROGENASE INCREASED [None]
  - HEPATOCELLULAR DAMAGE [None]
  - LIVER FUNCTION TEST ABNORMAL [None]
